FAERS Safety Report 10670969 (Version 1)
Quarter: 2014Q4

REPORT INFORMATION
  Report Type: Spontaneous
  Country: IT (occurrence: None)
  Receive Date: 20141219
  Receipt Date: 20141219
  Transmission Date: 20150529
  Serious: Yes (Other)
  Sender: FDA-Public Use
  Company Number: 2664215

PATIENT
  Age: 83 Year
  Sex: Female

DRUGS (8)
  1. MOVICOL [Concomitant]
     Active Substance: POLYETHYLENE GLYCOL 3350\POTASSIUM CHLORIDE\SODIUM BICARBONATE\SODIUM CHLORIDE
  2. TRITTICO [Concomitant]
     Active Substance: TRAZODONE HYDROCHLORIDE
  3. RAMIPRIL. [Concomitant]
     Active Substance: RAMIPRIL
  4. TACHIPIRINA [Concomitant]
     Active Substance: ACETAMINOPHEN
  5. CLEXANE [Concomitant]
     Active Substance: ENOXAPARIN SODIUM
  6. CEFTRIAXONE SODIUM. [Suspect]
     Active Substance: CEFTRIAXONE SODIUM
     Indication: INFECTION
     Dosage: 1 G GRAM(S), UNKNOWN, INTRAMUSCULAR
     Route: 030
     Dates: start: 20141118, end: 20141120
  7. LANSOX [Concomitant]
     Active Substance: LANSOPRAZOLE
  8. EUTIROX [Concomitant]
     Active Substance: LEVOTHYROXINE SODIUM

REACTIONS (4)
  - Bronchospasm [None]
  - Acute respiratory failure [None]
  - Dyspnoea [None]
  - Oxygen saturation decreased [None]

NARRATIVE: CASE EVENT DATE: 20141120
